FAERS Safety Report 11966742 (Version 2)
Quarter: 2016Q1

REPORT INFORMATION
  Report Type: Spontaneous
  Country: US (occurrence: US)
  Receive Date: 20160127
  Receipt Date: 20160201
  Transmission Date: 20160526
  Serious: Yes (Other)
  Sender: FDA-Public Use
  Company Number: US-PFIZER INC-2016043818

PATIENT
  Age: 53 Year
  Sex: Male

DRUGS (3)
  1. INLYTA [Suspect]
     Active Substance: AXITINIB
     Indication: RENAL CELL CARCINOMA
     Dosage: 5 MG, UNK
     Route: 048
  2. INLYTA [Suspect]
     Active Substance: AXITINIB
     Dosage: 7 MG EVERY 12 HOURS
     Route: 048
     Dates: start: 20151215
  3. GRAPEFRUIT JUICE [Concomitant]
     Active Substance: GRAPEFRUIT JUICE

REACTIONS (4)
  - Constipation [Not Recovered/Not Resolved]
  - Abdominal pain upper [Unknown]
  - Blood calcium increased [Unknown]
  - Malaise [Unknown]

NARRATIVE: CASE EVENT DATE: 20160128
